FAERS Safety Report 13835209 (Version 1)
Quarter: 2017Q3

REPORT INFORMATION
  Report Type: Spontaneous
  Country: ZA (occurrence: ZA)
  Receive Date: 20170804
  Receipt Date: 20170804
  Transmission Date: 20171127
  Serious: Yes (Hospitalization)
  Sender: FDA-Public Use
  Company Number: ZA-PFIZER INC-2017337498

PATIENT
  Age: 68 Year
  Sex: Female

DRUGS (11)
  1. MEROPENEM. [Suspect]
     Active Substance: MEROPENEM
     Dosage: 20
     Dates: start: 20160126
  2. ASPEN FLUCONAZOLE [Concomitant]
     Dosage: 1 DF, UNK
     Dates: start: 20160203
  3. CANCIDAS [Concomitant]
     Active Substance: CASPOFUNGIN ACETATE
     Dosage: 70 MG, UNK
     Dates: start: 20160210
  4. CANCIDAS [Concomitant]
     Active Substance: CASPOFUNGIN ACETATE
     Dosage: 50 MG, UNK
     Dates: start: 20160212
  5. TAVANIC [Concomitant]
     Active Substance: LEVOFLOXACIN
     Dosage: 500 MG, UNK
     Route: 042
     Dates: start: 20160210
  6. VFEND [Concomitant]
     Active Substance: VORICONAZOLE
     Indication: FUNGAL TEST POSITIVE
     Dosage: 200 MG, UNK
     Dates: start: 20160217
  7. CANCIDAS [Concomitant]
     Active Substance: CASPOFUNGIN ACETATE
     Dosage: 50 MG, UNK
     Dates: start: 20160210
  8. CANCIDAS [Concomitant]
     Active Substance: CASPOFUNGIN ACETATE
     Dosage: 50 MG, UNK
     Dates: start: 20160209, end: 20160213
  9. MERONEM [Suspect]
     Active Substance: MEROPENEM
     Dosage: 1 G, VIAL
     Dates: start: 20160125
  10. TAZIJECT [Concomitant]
     Dosage: 2 G, UNK
     Dates: start: 20160209
  11. ELTROXIN [Concomitant]
     Active Substance: LEVOTHYROXINE

REACTIONS (1)
  - Confusional state [Recovered/Resolved]

NARRATIVE: CASE EVENT DATE: 20160127
